FAERS Safety Report 13601565 (Version 2)
Quarter: 2017Q2

REPORT INFORMATION
  Report Type: Spontaneous
  Country: US (occurrence: US)
  Receive Date: 20170601
  Receipt Date: 20170621
  Transmission Date: 20170830
  Serious: Yes (Other)
  Sender: FDA-Public Use
  Company Number: US-ARALEZ PHARMACEUTICALS R+D INC.-ARA-TP-US-2017-602

PATIENT
  Age: 60 Year
  Sex: Female

DRUGS (6)
  1. LEVOCETIRIZINE [Concomitant]
     Active Substance: LEVOCETIRIZINE
  2. OLMESARTAN [Concomitant]
     Active Substance: OLMESARTAN
  3. NEXIUM [Concomitant]
     Active Substance: ESOMEPRAZOLE MAGNESIUM
  4. METOPROLOL SUCCINATE. [Suspect]
     Active Substance: METOPROLOL SUCCINATE
     Indication: ATRIAL FIBRILLATION
     Route: 065
  5. TIKOSYN [Concomitant]
     Active Substance: DOFETILIDE
  6. XARELTO [Concomitant]
     Active Substance: RIVAROXABAN

REACTIONS (2)
  - Off label use [Unknown]
  - Atrial fibrillation [Unknown]

NARRATIVE: CASE EVENT DATE: 20170522
